FAERS Safety Report 9607559 (Version 1)
Quarter: 2013Q4

REPORT INFORMATION
  Report Type: Spontaneous
  Country: US (occurrence: None)
  Receive Date: 20131008
  Receipt Date: 20131008
  Transmission Date: 20140711
  Serious: Yes (Other)
  Sender: FDA-Public Use
  Company Number: None

PATIENT
  Age: 14 Year
  Sex: Male
  Weight: 68.04 kg

DRUGS (2)
  1. RISPERDAL [Suspect]
     Indication: OBSESSIVE-COMPULSIVE DISORDER
     Dates: start: 2004, end: 2010
  2. RISPERDAL [Suspect]
     Dates: start: 2004, end: 2010

REACTIONS (2)
  - Overweight [None]
  - Gynaecomastia [None]
